FAERS Safety Report 5037266-3 (Version None)
Quarter: 2006Q2

REPORT INFORMATION
  Report Type: 
  Country: None (occurrence: None)
  Receive Date: 20060628
  Receipt Date: 20060111
  Transmission Date: 20061013
  Serious: Yes (Other)
  Sender: FDA-Public Use
  Company Number: US-ROCHE-431807

PATIENT
  Age: 47 Year
  Sex: Female
  Weight: 77.1 kg

DRUGS (7)
  1. PEGASYS [Suspect]
     Indication: HEPATITIS C
     Route: 058
     Dates: start: 20051113
  2. COPEGUS [Suspect]
     Indication: HEPATITIS C
     Dosage: DOSAGE: 600 MG IN THE MORNING AND 400 MG IN THE EVENING.
     Route: 048
     Dates: start: 20051113
  3. CELEXA [Suspect]
     Indication: DEPRESSION
     Dosage: ON AN UNSPECIFIED DATE, THE MEDICATION WAS INCREASED TO 20 MG DAILY.
     Route: 048
  4. HYDROCHLOROTHIAZIDE [Concomitant]
     Indication: HYPERTENSION
     Route: 048
     Dates: start: 20030615
  5. ENALAPRIL [Concomitant]
     Indication: HYPERTENSION
     Route: 048
     Dates: start: 20030615
  6. METOPROLOL TARTRATE [Concomitant]
     Indication: HYPERTENSION
     Route: 048
     Dates: start: 20030615
  7. TRAZODONE HCL [Concomitant]
     Indication: INSOMNIA

REACTIONS (11)
  - ABDOMINAL DISTENSION [None]
  - ANGER [None]
  - ARTHRITIS [None]
  - CATARACT [None]
  - CONDITION AGGRAVATED [None]
  - CONSTIPATION [None]
  - DRUG INEFFECTIVE [None]
  - FATIGUE [None]
  - GLAUCOMA [None]
  - HYPERTENSION [None]
  - INSOMNIA [None]
